FAERS Safety Report 5810399-7 (Version None)
Quarter: 2008Q3

REPORT INFORMATION
  Report Type: 
  Country: None (occurrence: None)
  Receive Date: 20080715
  Receipt Date: 20080702
  Transmission Date: 20090109
  Serious: Yes (Other)
  Sender: FDA-Public Use
  Company Number: CA-ROCHE-574167

PATIENT
  Age: 42 Year
  Sex: Male
  Weight: 77 kg

DRUGS (5)
  1. PEGASYS [Suspect]
     Indication: DRUG USE FOR UNKNOWN INDICATION
     Route: 065
  2. RIBAVIRIN [Suspect]
     Indication: DRUG USE FOR UNKNOWN INDICATION
     Route: 065
  3. METFORMIN [Concomitant]
  4. ALTACE [Concomitant]
  5. WELLBUTRIN [Concomitant]

REACTIONS (11)
  - ALOPECIA [None]
  - ASTHENIA [None]
  - CONFUSIONAL STATE [None]
  - DISTURBANCE IN ATTENTION [None]
  - HYPOGLYCAEMIA [None]
  - ORTHOSTATIC HYPOTENSION [None]
  - PANIC REACTION [None]
  - PHOBIA [None]
  - PRURITUS [None]
  - THROMBOCYTOPENIA [None]
  - WEIGHT DECREASED [None]
